FAERS Safety Report 19381245 (Version 1)
Quarter: 2021Q2

REPORT INFORMATION
  Report Type: Spontaneous
  Country: US (occurrence: US)
  Receive Date: 20210604
  Receipt Date: 20210604
  Transmission Date: 20210717
  Serious: Yes (Hospitalization)
  Sender: FDA-Public Use
  Company Number: None

PATIENT
  Age: 39 Year
  Sex: Female
  Weight: 82.8 kg

DRUGS (10)
  1. PROPRANOLOL [Concomitant]
     Active Substance: PROPRANOLOL HYDROCHLORIDE
  2. VYVANSE [Concomitant]
     Active Substance: LISDEXAMFETAMINE DIMESYLATE
  3. VITAMIN D [Concomitant]
     Active Substance: VITAMIN D NOS
  4. VITAMIN B12 [Concomitant]
     Active Substance: CYANOCOBALAMIN
  5. LAMICTAL [Concomitant]
     Active Substance: LAMOTRIGINE
  6. TRAZOSONE [Concomitant]
  7. BIUPROFEN [Concomitant]
  8. ZINC PROPIONATE. [Concomitant]
     Active Substance: ZINC PROPIONATE
  9. AIMOVIG [Suspect]
     Active Substance: ERENUMAB-AOOE
     Indication: MIGRAINE
     Dates: start: 20210508
  10. WELLBUTRIN [Concomitant]
     Active Substance: BUPROPION HYDROCHLORIDE

REACTIONS (9)
  - Dizziness [None]
  - Fatigue [None]
  - Depression [None]
  - Drug ineffective [None]
  - Chest pain [None]
  - Anxiety [None]
  - Dyspnoea [None]
  - Constipation [None]
  - Hypertension [None]

NARRATIVE: CASE EVENT DATE: 20210603
